FAERS Safety Report 6529415-2 (Version None)
Quarter: 2010Q1

REPORT INFORMATION
  Report Type: 
  Country: None (occurrence: None)
  Receive Date: 20100104
  Receipt Date: 20091223
  Transmission Date: 20100710
  Serious: Yes (Life-Threatening, Hospitalization)
  Sender: FDA-Public Use
  Company Number: ADR-UNK-053

PATIENT
  Age: 41 Year
  Sex: Male
  Weight: 61.2356 kg

DRUGS (3)
  1. SERTRALINE HCL [Suspect]
     Indication: DEPRESSION
     Dosage: 150 MG (150 MG, 1 IN 1 D) ORAL; 100 MG (100 MG, 1 IN 1 D) ORAL; 50 MG (50 MG, 1 IN 1 D) ORAL
     Route: 048
     Dates: start: 20090917, end: 20090923
  2. SERTRALINE HCL [Suspect]
     Indication: DEPRESSION
     Dosage: 150 MG (150 MG, 1 IN 1 D) ORAL; 100 MG (100 MG, 1 IN 1 D) ORAL; 50 MG (50 MG, 1 IN 1 D) ORAL
     Route: 048
     Dates: start: 20090924, end: 20091015
  3. SERTRALINE HCL [Suspect]
     Indication: DEPRESSION
     Dosage: 150 MG (150 MG, 1 IN 1 D) ORAL; 100 MG (100 MG, 1 IN 1 D) ORAL; 50 MG (50 MG, 1 IN 1 D) ORAL
     Route: 048
     Dates: start: 20091016, end: 20091027

REACTIONS (20)
  - ACTIVATED PARTIAL THROMBOPLASTIN TIME PROLONGED [None]
  - ALANINE AMINOTRANSFERASE INCREASED [None]
  - ASPARTATE AMINOTRANSFERASE INCREASED [None]
  - ATELECTASIS [None]
  - BLOOD CREATINE INCREASED [None]
  - BLOOD GLUCOSE DECREASED [None]
  - BLOOD PH DECREASED [None]
  - BLOOD POTASSIUM INCREASED [None]
  - BLOOD PRESSURE DECREASED [None]
  - COMA SCALE ABNORMAL [None]
  - CONVULSION [None]
  - EMOTIONAL DISTRESS [None]
  - PCO2 DECREASED [None]
  - PLATELET COUNT INCREASED [None]
  - PO2 INCREASED [None]
  - RESPIRATORY RATE INCREASED [None]
  - SEROTONIN SYNDROME [None]
  - SINUS TACHYCARDIA [None]
  - UNRESPONSIVE TO STIMULI [None]
  - WHITE BLOOD CELL COUNT INCREASED [None]
